FAERS Safety Report 21772527 (Version 2)
Quarter: 2023Q1

REPORT INFORMATION
  Report Type: Report from Study
  Country: US (occurrence: US)
  Receive Date: 20221223
  Receipt Date: 20230127
  Transmission Date: 20230417
  Serious: No
  Sender: FDA-Public Use
  Company Number: US-AGIOS-2212US03219

PATIENT
  Sex: Male

DRUGS (1)
  1. MITAPIVAT [Suspect]
     Active Substance: MITAPIVAT
     Indication: Pyruvate kinase deficiency anaemia
     Dosage: 50 MILLIGRAM
     Route: 048
     Dates: start: 20220818

REACTIONS (4)
  - Libido decreased [Unknown]
  - Poor quality sleep [Unknown]
  - Middle insomnia [Unknown]
  - Serum ferritin decreased [Unknown]
